FAERS Safety Report 4411036-9 (Version None)
Quarter: 2004Q2

REPORT INFORMATION
  Report Type: 
  Country: None (occurrence: None)
  Receive Date: 20040630
  Receipt Date: 20040510
  Transmission Date: 20050107
  Serious: No
  Sender: FDA-Public Use
  Company Number: 04P-163-0260174-00

PATIENT
  Sex: Female
  Weight: 99.7913 kg

DRUGS (4)
  1. HUMIRA [Suspect]
     Indication: RHEUMATOID ARTHRITIS
     Dosage: 40 MG, 1 IN 2 WK; SUBCUTANEOUS
     Route: 058
     Dates: start: 20040322
  2. LOTREL [Concomitant]
  3. LEVOTHYROXINE SODIUM [Concomitant]
  4. ANOVLAR [Concomitant]

REACTIONS (1)
  - PHARYNGITIS STREPTOCOCCAL [None]
